FAERS Safety Report 22088646 (Version 4)
Quarter: 2023Q2

REPORT INFORMATION
  Report Type: Report from Study
  Country: CA (occurrence: CA)
  Receive Date: 20230313
  Receipt Date: 20230612
  Transmission Date: 20230721
  Serious: Yes (Other)
  Sender: FDA-Public Use
  Company Number: CA-GLAXOSMITHKLINE-CA2023AMR036097

PATIENT

DRUGS (1)
  1. MEPOLIZUMAB [Suspect]
     Active Substance: MEPOLIZUMAB
     Indication: Asthma
     Dosage: 100 MG, Q4W (EVERY 4 WEEKS)
     Route: 058
     Dates: start: 20180906

REACTIONS (8)
  - Pneumonia fungal [Recovering/Resolving]
  - Bronchopulmonary aspergillosis [Unknown]
  - Peripheral swelling [Unknown]
  - Hypersensitivity [Unknown]
  - Constipation [Unknown]
  - Dyspnoea [Unknown]
  - Asthenia [Unknown]
  - Malaise [Unknown]

NARRATIVE: CASE EVENT DATE: 20230201
